FAERS Safety Report 5838301-2 (Version None)
Quarter: 2008Q3

REPORT INFORMATION
  Report Type: 
  Country: None (occurrence: None)
  Receive Date: 20080806
  Receipt Date: 20080729
  Transmission Date: 20090109
  Serious: Yes (Other)
  Sender: FDA-Public Use
  Company Number: JPI-P-004243

PATIENT
  Age: 56 Year
  Sex: Female

DRUGS (11)
  1. XYREM [Suspect]
     Indication: NARCOLEPSY
     Dosage: 4.5 GM (2.25 GM, 2 IN  1 D), ORAL; 9 GM (4.5 GM, 2 IN 1 D), ORAL
     Route: 048
     Dates: start: 20060611, end: 20060801
  2. XYREM [Suspect]
     Indication: SOMNOLENCE
     Dosage: 4.5 GM (2.25 GM, 2 IN  1 D), ORAL; 9 GM (4.5 GM, 2 IN 1 D), ORAL
     Route: 048
     Dates: start: 20060611, end: 20060801
  3. XYREM [Suspect]
     Indication: NARCOLEPSY
     Dosage: 4.5 GM (2.25 GM, 2 IN  1 D), ORAL; 9 GM (4.5 GM, 2 IN 1 D), ORAL
     Route: 048
     Dates: start: 20060801
  4. XYREM [Suspect]
     Indication: SOMNOLENCE
     Dosage: 4.5 GM (2.25 GM, 2 IN  1 D), ORAL; 9 GM (4.5 GM, 2 IN 1 D), ORAL
     Route: 048
     Dates: start: 20060801
  5. LORAZEPAM [Suspect]
     Indication: ANXIETY
  6. MODAFINIL (MODAFINIL) [Concomitant]
  7. TRAZODONE HCL [Concomitant]
  8. CLONIDINE [Concomitant]
  9. ARIPIPRAZOLE [Concomitant]
  10. DULOXETINE HYDROCHLORIDE (DULOXETINE HYDROCHLORIDE) [Concomitant]
  11. AMPHENTAMINE MIXED SALTS (AMFETAMINE SULFATE) [Concomitant]

REACTIONS (4)
  - DYSPNOEA [None]
  - FALL [None]
  - FIBULA FRACTURE [None]
  - HYPOTENSION [None]
